FAERS Safety Report 9432183 (Version 1)
Quarter: 2013Q3

REPORT INFORMATION
  Report Type: Spontaneous
  Country: MX (occurrence: None)
  Receive Date: 20130726
  Receipt Date: 20130726
  Transmission Date: 20140515
  Serious: Yes (Hospitalization)
  Sender: FDA-Public Use
  Company Number: DSU-2013-04050

PATIENT
  Age: 72 Year
  Sex: Male
  Weight: 72 kg

DRUGS (2)
  1. ALMETEC [Suspect]
     Indication: HYPERTENSION
     Route: 048
     Dates: end: 201306
  2. JANUMET [Suspect]
     Indication: DIABETES MELLITUS
     Dosage: 50/1000 MG (1 TAB DAILY IN MORNING)
     Route: 048
     Dates: start: 2010, end: 201306

REACTIONS (3)
  - Syncope [None]
  - Hyponatraemia [None]
  - Loss of consciousness [None]
